FAERS Safety Report 8936873 (Version 4)
Quarter: 2013Q1

REPORT INFORMATION
  Report Type: Spontaneous
  Country: US (occurrence: US)
  Receive Date: 20121130
  Receipt Date: 20130315
  Transmission Date: 20140127
  Serious: No
  Sender: FDA-Public Use
  Company Number: US-009507513-1211USA011686

PATIENT
  Age: 22 None
  Sex: Female
  Weight: 110.2 kg

DRUGS (1)
  1. IMPLANON [Suspect]
     Indication: CONTRACEPTION
     Dosage: UNK
     Dates: start: 20120416, end: 20121213

REACTIONS (4)
  - Amenorrhoea [Recovered/Resolved]
  - Implant site paraesthesia [Recovered/Resolved]
  - Device breakage [Unknown]
  - Device dislocation [Unknown]
